FAERS Safety Report 7039440-3 (Version None)
Quarter: 2010Q4

REPORT INFORMATION
  Report Type: 
  Country: None (occurrence: None)
  Receive Date: 20101012
  Receipt Date: 20101001
  Transmission Date: 20110411
  Serious: Yes (Other)
  Sender: FDA-Public Use
  Company Number: AU-ROCHE-730349

PATIENT
  Sex: Female

DRUGS (1)
  1. XELODA [Suspect]
     Route: 065
     Dates: start: 20091001

REACTIONS (1)
  - SPINAL DISORDER [None]
